FAERS Safety Report 14020665 (Version 1)
Quarter: 2017Q3

REPORT INFORMATION
  Report Type: Report from Study
  Country: KR (occurrence: KR)
  Receive Date: 20170928
  Receipt Date: 20170928
  Transmission Date: 20171128
  Serious: Yes (Hospitalization)
  Sender: FDA-Public Use
  Company Number: KR-GLAXOSMITHKLINE-KR2017GSK147608

PATIENT
  Age: 39 Year
  Sex: Male
  Weight: 58 kg

DRUGS (8)
  1. ETRAVIL [Concomitant]
     Active Substance: AMITRIPTYLINE HYDROCHLORIDE
     Indication: INDUCTION OF ANAESTHESIA
     Dosage: 1 TAB BID
     Dates: start: 20160517
  2. SINGULAIR [Concomitant]
     Active Substance: MONTELUKAST SODIUM
     Indication: ASTHMA
     Dosage: 10 MG, QD
     Dates: start: 20150716
  3. RIZE [Concomitant]
     Active Substance: CLOTIAZEPAM
     Indication: INDUCTION OF ANAESTHESIA
     Dosage: 1 TAB BID
     Dates: start: 20160517
  4. CLARITYNE [Concomitant]
     Active Substance: LORATADINE
     Dosage: 10 MG, QD
     Dates: start: 20151125
  5. ARONAMIN C [Concomitant]
     Indication: VITAMIN D DEFICIENCY
     Dosage: 1 TAB DAILY
     Dates: start: 20150716
  6. FLUTICASONE FUROATE + VILANTEROL TRIFENATATE [Suspect]
     Active Substance: FLUTICASONE FUROATE\VILANTEROL TRIFENATATE
     Indication: ASTHMA
     Dosage: 25 MG, QD
     Route: 055
     Dates: start: 20170531
  7. RIVOTRIL [Concomitant]
     Active Substance: CLONAZEPAM
     Indication: INDUCTION OF ANAESTHESIA
     Dosage: 1 TAB BID
     Dates: start: 20160517
  8. DICAMAX-D [Concomitant]
     Indication: VITAMIN D DEFICIENCY
     Dosage: 2 TAB DAILY
     Dates: start: 20150716

REACTIONS (1)
  - Gastroenteritis [Recovered/Resolved]

NARRATIVE: CASE EVENT DATE: 20170902
